FAERS Safety Report 8982511 (Version 1)
Quarter: 2012Q4

REPORT INFORMATION
  Report Type: 
  Country: CA (occurrence: CA)
  Receive Date: 20121222
  Receipt Date: 20121222
  Transmission Date: 20130627
  Serious: No
  Sender: FDA-Public Use
  Company Number: CA-009507513-1212CAN007660

PATIENT
  Age: 29 Year
  Sex: Female
  Weight: 136 kg

DRUGS (13)
  1. SAPHRIS [Suspect]
     Indication: BIPOLAR DISORDER
     Dosage: 10 mg, qd
     Route: 060
     Dates: start: 20121001, end: 20121108
  2. LITHIUM [Concomitant]
     Indication: BIPOLAR DISORDER
     Dosage: 600 mg, qd
     Route: 048
  3. LAMOTRIGINE [Concomitant]
     Indication: ANXIETY
     Dosage: 100 mg, qd
     Route: 048
     Dates: start: 201211
  4. RABEPRAZOLE SODIUM [Concomitant]
     Indication: GASTROOESOPHAGEAL REFLUX DISEASE
     Dosage: 20 mg, qd
     Route: 048
  5. FERROUS SULFATE [Concomitant]
     Indication: MINERAL SUPPLEMENTATION
     Dosage: 300 mg, qd
     Route: 048
  6. INDAPAMIDE [Concomitant]
     Indication: PRODUCT USED FOR UNKNOWN INDICATION
     Dosage: 1.25 mg, qd
     Route: 048
  7. ELTROXIN [Concomitant]
     Indication: THYROID DISORDER
     Dosage: 0.1 mg, qd
     Route: 048
  8. TEMAZEPAM [Concomitant]
     Indication: ANXIETY
     Dosage: 30 mg, qd
     Route: 048
     Dates: start: 201211
  9. COVERSYL (PERINDOPRIL ARGININE) [Concomitant]
     Indication: HYPERTENSION
     Dosage: 4 mg, qd
     Route: 065
  10. YASMIN [Concomitant]
     Indication: CONTRACEPTION
     Route: 065
  11. ADVAIR [Concomitant]
     Indication: PRODUCT USED FOR UNKNOWN INDICATION
     Dosage: 250 Microgram, qd
     Route: 065
  12. VENTOLIN (ALBUTEROL) [Concomitant]
     Indication: PRODUCT USED FOR UNKNOWN INDICATION
     Dosage: UNK, prn
     Route: 065
  13. SEROQUEL [Concomitant]
     Indication: ANXIETY
     Dosage: 25 mg, prn
     Route: 065

REACTIONS (4)
  - Hypersensitivity [Recovered/Resolved]
  - Musculoskeletal stiffness [Recovered/Resolved]
  - Dysphagia [Recovered/Resolved]
  - Inappropriate schedule of drug administration [Unknown]
